FAERS Safety Report 4945419-5 (Version None)
Quarter: 2006Q1

REPORT INFORMATION
  Report Type: 
  Country: None (occurrence: None)
  Receive Date: 20060316
  Receipt Date: 20051202
  Transmission Date: 20060701
  Serious: Yes (Other)
  Sender: FDA-Public Use
  Company Number: US-GLAXOSMITHKLINE-A0584461A

PATIENT
  Age: 41 Year
  Sex: Female

DRUGS (5)
  1. PAXIL CR [Suspect]
     Dosage: 37.5MG PER DAY
     Route: 048
     Dates: start: 20051027
  2. PAXIL [Suspect]
     Route: 048
  3. PAROXETINE HCL [Suspect]
     Dosage: 37.5MG PER DAY
     Route: 048
  4. HALOPERIDOL [Concomitant]
  5. CLONIDINE [Concomitant]

REACTIONS (2)
  - NAUSEA [None]
  - TOURETTE'S DISORDER [None]
